FAERS Safety Report 4265998-3 (Version None)
Quarter: 2004Q1

REPORT INFORMATION
  Report Type: 
  Country: None (occurrence: None)
  Receive Date: 20040107
  Receipt Date: 20040107
  Transmission Date: 20041129
  Serious: No
  Sender: FDA-Public Use
  Company Number: None

PATIENT

DRUGS (2)
  1. ABILIFY [Suspect]
  2. TOPAMAX [Suspect]

REACTIONS (3)
  - COGNITIVE DISORDER [None]
  - DRUG EFFECT DECREASED [None]
  - DRUG INTERACTION [None]
